FAERS Safety Report 22601550 (Version 1)
Quarter: 2023Q2

REPORT INFORMATION
  Report Type: Spontaneous
  Country: US (occurrence: US)
  Receive Date: 20230614
  Receipt Date: 20230614
  Transmission Date: 20230722
  Serious: No
  Sender: FDA-Public Use
  Company Number: US-PFIZER INC-PV202300103532

PATIENT
  Age: 64 Year
  Sex: Male

DRUGS (4)
  1. CIBINQO [Suspect]
     Active Substance: ABROCITINIB
     Dosage: UNK
  2. DUPIXENT [Suspect]
     Active Substance: DUPILUMAB
     Indication: Psoriasis
     Dosage: 300 MG (QOW (EVERY OTHER WEEK))
     Route: 058
     Dates: start: 202212
  3. DUPIXENT [Suspect]
     Active Substance: DUPILUMAB
     Indication: Neurodermatitis
  4. DUPIXENT [Suspect]
     Active Substance: DUPILUMAB
     Indication: Dermatitis atopic

REACTIONS (4)
  - Illness [Unknown]
  - Skin burning sensation [Unknown]
  - Pruritus [Unknown]
  - Erythema [Unknown]
